FAERS Safety Report 5078223-0 (Version None)
Quarter: 2006Q3

REPORT INFORMATION
  Report Type: 
  Country: None (occurrence: None)
  Receive Date: 20060811
  Receipt Date: 20060731
  Transmission Date: 20061208
  Serious: Yes (Hospitalization, Other)
  Sender: FDA-Public Use
  Company Number: CA-BRISTOL-MYERS SQUIBB COMPANY-13460365

PATIENT
  Age: 52 Year
  Sex: Female

DRUGS (2)
  1. WARFARIN SODIUM [Suspect]
     Indication: DEEP VEIN THROMBOSIS
  2. HEPARIN [Suspect]
     Indication: DEEP VEIN THROMBOSIS

REACTIONS (10)
  - GANGRENE [None]
  - INTERNATIONAL NORMALISED RATIO INCREASED [None]
  - MENTAL STATUS CHANGES [None]
  - METASTATIC NEOPLASM [None]
  - NAUSEA [None]
  - OLIGURIA [None]
  - SKIN NECROSIS [None]
  - THROMBOTIC THROMBOCYTOPENIC PURPURA [None]
  - VENOUS THROMBOSIS [None]
  - VOMITING [None]
